FAERS Safety Report 5254348-1 (Version None)
Quarter: 2007Q1

REPORT INFORMATION
  Report Type: 
  Country: None (occurrence: None)
  Receive Date: 20070302
  Receipt Date: 20070223
  Transmission Date: 20070707
  Serious: Yes (Other)
  Sender: FDA-Public Use
  Company Number: US-JNJFOC-20070206143

PATIENT
  Sex: Female
  Weight: 64.86 kg

DRUGS (11)
  1. DURAGESIC [Suspect]
     Indication: PAIN
     Route: 062
  2. TOPROL-XL [Concomitant]
     Indication: HYPERTENSION
     Route: 048
  3. NORVASC [Concomitant]
     Indication: HYPERTENSION
     Route: 048
  4. BETOPTIC S [Concomitant]
     Indication: GLAUCOMA
     Route: 047
  5. LASIX [Concomitant]
     Route: 048
  6. LORAZEPAM [Concomitant]
     Route: 048
  7. PHENERGAN HCL [Concomitant]
     Route: 048
  8. POTASSIUM ACETATE [Concomitant]
     Route: 048
  9. LORTAB [Concomitant]
     Indication: BREAKTHROUGH PAIN
     Route: 048
  10. ZANTAC [Concomitant]
     Route: 048
  11. VITAMIN AND MINERAL PRENATAL SUPPLEMENT W/ FOLIC ACID CAP [Concomitant]
     Route: 048

REACTIONS (3)
  - DEPRESSION [None]
  - HALLUCINATION [None]
  - SUICIDAL IDEATION [None]
